FAERS Safety Report 4281812-4 (Version None)
Quarter: 2004Q1

REPORT INFORMATION
  Report Type: 
  Country: None (occurrence: None)
  Receive Date: 20040129
  Receipt Date: 20040129
  Transmission Date: 20041129
  Serious: Yes (Death)
  Sender: FDA-Public Use
  Company Number: None

PATIENT
  Sex: Male
  Weight: 76.8847 kg

DRUGS (7)
  1. IRESSA [Suspect]
     Indication: LUNG NEOPLASM MALIGNANT
     Dosage: 250 MG QD ORAL
     Route: 048
     Dates: start: 20031229, end: 20040114
  2. COUMADIN [Concomitant]
  3. DECADRON [Concomitant]
  4. TYLENOL (CAPLET) [Concomitant]
  5. NEXIUM [Concomitant]
  6. NYSTATIN [Concomitant]
  7. ATIVAN [Concomitant]

REACTIONS (3)
  - CHOKING [None]
  - INCREASED BRONCHIAL SECRETION [None]
  - LOCAL SWELLING [None]
